FAERS Safety Report 13540391 (Version 1)
Quarter: 2017Q2

REPORT INFORMATION
  Report Type: Spontaneous
  Country: US (occurrence: US)
  Receive Date: 20170512
  Receipt Date: 20170512
  Transmission Date: 20170830
  Serious: Yes (Hospitalization)
  Sender: FDA-Public Use
  Company Number: US-ORPHAN EUROPE-2020643

PATIENT
  Age: 7 Month
  Sex: Female
  Weight: 7.95 kg

DRUGS (2)
  1. CARBAGLU [Suspect]
     Active Substance: CARGLUMIC ACID
     Indication: UREA CYCLE ENZYME DEFICIENCY
     Route: 048
     Dates: start: 20151031, end: 20160512
  2. CARBAGLU [Suspect]
     Active Substance: CARGLUMIC ACID
     Dates: start: 20160512

REACTIONS (1)
  - Streptococcal infection [Recovered/Resolved]

NARRATIVE: CASE EVENT DATE: 20160512
